FAERS Safety Report 4827824-0 (Version None)
Quarter: 2005Q4

REPORT INFORMATION
  Report Type: 
  Country: None (occurrence: None)
  Receive Date: 20051114
  Receipt Date: 20051114
  Transmission Date: 20060501
  Serious: No
  Sender: FDA-Public Use
  Company Number: None

PATIENT
  Age: 70 Year
  Sex: Male
  Weight: 99.7913 kg

DRUGS (2)
  1. NIACIN [Suspect]
     Indication: DYSLIPIDAEMIA
     Dosage: 1000 MG TID PO
     Route: 048
     Dates: start: 20050905, end: 20051005
  2. NIACIN [Concomitant]

REACTIONS (6)
  - HAEMODIALYSIS [None]
  - OEDEMA [None]
  - PRURITUS [None]
  - RENAL FAILURE ACUTE [None]
  - RENAL FAILURE CHRONIC [None]
  - SIMILAR REACTION ON PREVIOUS EXPOSURE TO DRUG [None]
